FAERS Safety Report 6647675-4 (Version None)
Quarter: 2010Q1

REPORT INFORMATION
  Report Type: 
  Country: None (occurrence: None)
  Receive Date: 20100323
  Receipt Date: 20100323
  Transmission Date: 20100710
  Serious: Yes (Other)
  Sender: FDA-Public Use
  Company Number: None

PATIENT
  Sex: Female
  Weight: 58.514 kg

DRUGS (1)
  1. RECLAST [Suspect]
     Indication: OSTEOPOROSIS
     Dosage: 100 ML 1 PER YEAR INJECTION
     Dates: start: 20100114

REACTIONS (10)
  - ARTHRALGIA [None]
  - BACK PAIN [None]
  - BEDRIDDEN [None]
  - BONE PAIN [None]
  - CHILLS [None]
  - HEADACHE [None]
  - HEART RATE INCREASED [None]
  - MIGRAINE [None]
  - NECK PAIN [None]
  - PYREXIA [None]
